FAERS Safety Report 6479505-8 (Version None)
Quarter: 2009Q4

REPORT INFORMATION
  Report Type: 
  Country: None (occurrence: None)
  Receive Date: 20091208
  Receipt Date: 20091124
  Transmission Date: 20100525
  Serious: Yes (Other)
  Sender: FDA-Public Use
  Company Number: US-RB-026414-09

PATIENT
  Age: 74 Year
  Sex: Male

DRUGS (3)
  1. MUCINEX DM [Suspect]
     Route: 048
     Dates: start: 20091122
  2. MUCINEX DM [Suspect]
     Dosage: TWICE DAILY FOR A FEW DAYS
     Route: 048
     Dates: start: 20091101
  3. ZESTRIL [Concomitant]
     Dosage: TAKES AT BEDTIME

REACTIONS (7)
  - ABDOMINAL DISCOMFORT [None]
  - ERUCTATION [None]
  - GASTROOESOPHAGEAL REFLUX DISEASE [None]
  - IIIRD NERVE PARALYSIS [None]
  - INITIAL INSOMNIA [None]
  - NAUSEA [None]
  - VOMITING [None]
